FAERS Safety Report 16222904 (Version 13)
Quarter: 2021Q2

REPORT INFORMATION
  Report Type: Spontaneous
  Country: US (occurrence: US)
  Receive Date: 20190422
  Receipt Date: 20210518
  Transmission Date: 20210716
  Serious: No
  Sender: FDA-Public Use
  Company Number: US-PFIZER INC-2018514600

PATIENT
  Age: 60 Year
  Sex: Female
  Weight: 69 kg

DRUGS (8)
  1. LYRICA [Suspect]
     Active Substance: PREGABALIN
     Indication: PARAESTHESIA
     Dosage: 100 MG, 3X/DAY, (TAKE 1 CAPSULE (100 MG TOTAL) BY MOUTH 3 (THREE) TIMES DAILY)
     Route: 048
     Dates: start: 20201026
  2. LYRICA [Suspect]
     Active Substance: PREGABALIN
     Indication: PAIN IN EXTREMITY
     Dosage: 50 MG, 1X/DAY
     Route: 048
  3. LYRICA [Suspect]
     Active Substance: PREGABALIN
     Indication: MUSCULOSKELETAL PAIN
     Dosage: 50 MG, 3X/DAY (1 CAPSULE 3 TIMES DAILY)
     Route: 048
     Dates: start: 20181120
  4. LYRICA [Suspect]
     Active Substance: PREGABALIN
     Indication: NEURALGIA
     Dosage: UNK
     Dates: start: 201812
  5. LYRICA [Suspect]
     Active Substance: PREGABALIN
     Dosage: 100 MG, 3X/DAY, (TAKE 1 CAPSULE (100 MG TOTAL) BY MOUTH 3 (THREE) TIMES DAILY)
     Route: 048
     Dates: start: 20200223
  6. IBUPROFEN. [Concomitant]
     Active Substance: IBUPROFEN
     Indication: NEURALGIA
     Dosage: 800 MG, 3X/DAY
     Route: 048
  7. LYRICA [Suspect]
     Active Substance: PREGABALIN
     Indication: NERVE INJURY
     Dosage: 50 MG, 3X/DAY
     Route: 048
     Dates: start: 20191114
  8. IBUPROFEN. [Concomitant]
     Active Substance: IBUPROFEN
     Indication: ABDOMINAL PAIN UPPER
     Dosage: UNK, AS NEEDED
     Route: 048
     Dates: start: 201805

REACTIONS (12)
  - Therapeutic product effect incomplete [Unknown]
  - Expired product administered [Unknown]
  - Abdominal distension [Unknown]
  - Nausea [Unknown]
  - Weight increased [Unknown]
  - Intentional product use issue [Unknown]
  - Abdominal pain upper [Not Recovered/Not Resolved]
  - Fluid retention [Not Recovered/Not Resolved]
  - Dysuria [Not Recovered/Not Resolved]
  - Visual impairment [Unknown]
  - Swelling [Unknown]
  - Decreased appetite [Unknown]

NARRATIVE: CASE EVENT DATE: 201904
